FAERS Safety Report 19120804 (Version 1)
Quarter: 2021Q2

REPORT INFORMATION
  Report Type: Spontaneous
  Country: US (occurrence: US)
  Receive Date: 20210410
  Receipt Date: 20210410
  Transmission Date: 20210717
  Serious: Yes (Other)
  Sender: FDA-Public Use
  Company Number: None

PATIENT

DRUGS (2)
  1. LOSARTAN TAB [Suspect]
     Active Substance: LOSARTAN
     Route: 048
  2. LEVOTHYROXINE TAB 100MCG [Suspect]
     Active Substance: LEVOTHYROXINE
     Route: 048

REACTIONS (3)
  - Urticaria [None]
  - Rash [None]
  - Allergic reaction to excipient [None]

NARRATIVE: CASE EVENT DATE: 20210409
